FAERS Safety Report 5954369-7 (Version None)
Quarter: 2008Q4

REPORT INFORMATION
  Report Type: 
  Country: None (occurrence: None)
  Receive Date: 20081113
  Receipt Date: 20081113
  Transmission Date: 20090506
  Serious: Yes (Other)
  Sender: FDA-Public Use
  Company Number: None

PATIENT
  Age: 69 Year
  Sex: Female
  Weight: 61.6892 kg

DRUGS (2)
  1. TEMAZEPAM [Suspect]
     Indication: SLEEP DISORDER
     Dosage: 1 PILL AT BEDTIME
     Dates: start: 20081001
  2. TEMAZEPAM [Suspect]
     Indication: SLEEP DISORDER
     Dosage: 1 PILL AT BEDTIME
     Dates: start: 20081101

REACTIONS (3)
  - ABNORMAL BEHAVIOUR [None]
  - MIDDLE INSOMNIA [None]
  - SOMNAMBULISM [None]
